FAERS Safety Report 20292349 (Version 2)
Quarter: 2022Q1

REPORT INFORMATION
  Report Type: Report from Study
  Country: ES (occurrence: ES)
  Receive Date: 20220104
  Receipt Date: 20220214
  Transmission Date: 20220424
  Serious: Yes (Other)
  Sender: FDA-Public Use
  Company Number: ES-ROCHE-2981441

PATIENT
  Age: 75 Year
  Sex: Male

DRUGS (17)
  1. BEVACIZUMAB [Suspect]
     Active Substance: BEVACIZUMAB
     Indication: Non-small cell lung cancer
     Route: 042
     Dates: start: 20211026
  2. CARBOPLATIN [Suspect]
     Active Substance: CARBOPLATIN
     Indication: Non-small cell lung cancer
     Route: 065
     Dates: start: 20211026
  3. PACLITAXEL [Suspect]
     Active Substance: PACLITAXEL
     Indication: Non-small cell lung cancer
     Route: 065
     Dates: start: 20211026
  4. ATEZOLIZUMAB [Suspect]
     Active Substance: ATEZOLIZUMAB
     Indication: Non-small cell lung cancer
     Route: 041
     Dates: start: 20211026
  5. CONDROSAN [Concomitant]
     Dosage: 0.5 UNITS A DAY
     Dates: start: 20200505
  6. ACETAMINOPHEN [Concomitant]
     Active Substance: ACETAMINOPHEN
     Dosage: UNK
     Dates: start: 20210814
  7. DUTASTERIDE\TAMSULOSIN [Concomitant]
     Active Substance: DUTASTERIDE\TAMSULOSIN
     Dosage: UNK, 1X/DAY
     Dates: start: 20201023
  8. BISOPROLOL [Concomitant]
     Active Substance: BISOPROLOL
     Dosage: UNK
     Dates: start: 20201023
  9. VALACYCLOVIR HYDROCHLORIDE [Concomitant]
     Active Substance: VALACYCLOVIR HYDROCHLORIDE
  10. TRAMADOL [Concomitant]
     Active Substance: TRAMADOL
     Dosage: 0.5 DF, DAILY
     Dates: start: 20210611
  11. FOSTER [Concomitant]
     Active Substance: BECLOMETHASONE\FORMOTEROL
  12. BROMAZEPAM [Concomitant]
     Active Substance: BROMAZEPAM
     Dosage: 1 DF, DAILY
     Dates: start: 20201023
  13. FUROSEMIDE [Concomitant]
     Active Substance: FUROSEMIDE
     Dosage: 0.33 UNITS A DAY
  14. FENTANYL [Concomitant]
     Active Substance: FENTANYL
     Dosage: 3 UNITS A DAY
     Dates: start: 20211201
  15. SINTROM [Concomitant]
     Active Substance: ACENOCOUMAROL
     Dosage: 0.5 DF, DAILY
     Dates: start: 20201201
  16. IBANDRONIC ACID [Concomitant]
     Active Substance: IBANDRONIC ACID
     Dosage: 1 DF, MONTHLY
     Dates: start: 20211212
  17. COMIRNATY [Concomitant]
     Active Substance: TOZINAMERAN
     Indication: COVID-19 immunisation
     Dosage: UNK
     Dates: start: 20211110, end: 20211110

REACTIONS (3)
  - Neurotoxicity [Recovered/Resolved]
  - Nausea [Recovered/Resolved]
  - Herpes zoster [Recovered/Resolved]

NARRATIVE: CASE EVENT DATE: 20211115
